FAERS Safety Report 15697548 (Version 2)
Quarter: 2019Q1

REPORT INFORMATION
  Report Type: Report from Study
  Country: None (occurrence: BR)
  Receive Date: 20181207
  Receipt Date: 20190305
  Transmission Date: 20190417
  Serious: Yes (Other)
  Sender: FDA-Public Use
  Company Number: BR-ABBVIE-18K-020-2576337-00

PATIENT
  Sex: Female
  Weight: 80 kg

DRUGS (1)
  1. HUMIRA [Suspect]
     Active Substance: ADALIMUMAB
     Indication: PRODUCT USED FOR UNKNOWN INDICATION
     Route: 058
     Dates: start: 201809

REACTIONS (15)
  - Back pain [Unknown]
  - Loss of personal independence in daily activities [Unknown]
  - Musculoskeletal chest pain [Unknown]
  - Pain in extremity [Unknown]
  - Gait disturbance [Unknown]
  - Inflammation [Recovering/Resolving]
  - Influenza [Recovered/Resolved]
  - Laryngitis [Recovered/Resolved]
  - Hypersensitivity [Recovered/Resolved]
  - Mass [Recovered/Resolved]
  - Rheumatic disorder [Unknown]
  - Bedridden [Unknown]
  - Limb mass [Unknown]
  - Dizziness [Recovered/Resolved]
  - Arthritis [Unknown]
